FAERS Safety Report 10219919 (Version 2)
Quarter: 2014Q2

REPORT INFORMATION
  Report Type: Other
  Country: CA (occurrence: CA)
  Receive Date: 20140605
  Receipt Date: 20140605
  Transmission Date: 20141212
  Serious: Yes (Other)
  Sender: FDA-Public Use
  Company Number: CA-GSKPPD-2014GSK018663

PATIENT
  Sex: 0

DRUGS (2)
  1. AVANDIA [Suspect]
     Indication: DIABETES MELLITUS
     Dosage: DATES OF AVANDIA USE COULD NOT BE CONFIRMED IN RECORDS REVIEWED.
     Route: 048
  2. AVANDAMET [Suspect]
     Indication: DIABETES MELLITUS
     Dosage: DATES OF AVANDAMET) USE COULD NOT BE CONFIRMED IN RECORDS REVIEWED.

REACTIONS (2)
  - Cardiomegaly [None]
  - Pericardial effusion [None]
